FAERS Safety Report 5712689-5 (Version None)
Quarter: 2008Q2

REPORT INFORMATION
  Report Type: 
  Country: None (occurrence: None)
  Receive Date: 20080422
  Receipt Date: 20080416
  Transmission Date: 20081010
  Serious: Yes (Life-Threatening)
  Sender: FDA-Public Use
  Company Number: FR-NOVOPROD-272669

PATIENT
  Sex: Female
  Weight: 33 kg

DRUGS (6)
  1. NORDITROPIN [Suspect]
     Indication: HYPOPITUITARISM
     Dosage: 24 UG/KG, UNK
     Dates: start: 19991018, end: 20060127
  2. NORDITROPIN [Suspect]
     Dosage: .5 MG, QD
     Dates: start: 20061001
  3. LEVOTHYROXINE SODIUM [Concomitant]
     Dosage: 50 UG/KG, UNK
     Dates: start: 19991018
  4. LEVOTHYROXINE SODIUM [Concomitant]
     Dosage: 62.5 UNK, UNK
     Dates: start: 20061001
  5. HYDROCORTISONE [Concomitant]
     Dosage: 3 MG, UNK
     Dates: start: 19991018
  6. HYDROCORTISONE [Concomitant]
     Dosage: 5 UNK, UNK
     Dates: start: 20061001

REACTIONS (1)
  - ASTROCYTOMA [None]
